FAERS Safety Report 7586583-1 (Version None)
Quarter: 2011Q3

REPORT INFORMATION
  Report Type: 
  Country: None (occurrence: None)
  Receive Date: 20110701
  Receipt Date: 20110623
  Transmission Date: 20111222
  Serious: Yes (Hospitalization)
  Sender: FDA-Public Use
  Company Number: SE-ABBOTT-11P-150-0734978-01

PATIENT
  Sex: Male

DRUGS (5)
  1. HUMIRA [Suspect]
  2. HUMIRA [Suspect]
     Route: 058
  3. HUMIRA [Suspect]
     Indication: CROHN'S DISEASE
     Route: 058
     Dates: start: 20091022, end: 20091022
  4. FERINJECT [Concomitant]
     Indication: ANAEMIA
     Dates: start: 20091126, end: 20100408
  5. HUMIRA [Suspect]
     Route: 058
     Dates: start: 20091124, end: 20091208

REACTIONS (1)
  - CROHN'S DISEASE [None]
